FAERS Safety Report 4698752-9 (Version None)
Quarter: 2005Q2

REPORT INFORMATION
  Report Type: 
  Country: None (occurrence: None)
  Receive Date: 20050621
  Receipt Date: 20050608
  Transmission Date: 20051028
  Serious: Yes (Disabling)
  Sender: FDA-Public Use
  Company Number: US_0505118009

PATIENT
  Age: 20 Year
  Sex: Male

DRUGS (7)
  1. CEFACLOR [Suspect]
     Indication: UPPER RESPIRATORY TRACT INFLAMMATION
     Dosage: 1500 MG DAY
     Dates: start: 20050419, end: 20050423
  2. CEFAZOLIN SODIUM [Concomitant]
  3. METILON(METAMIZOLE SODIUM) [Concomitant]
  4. CEFMETAZON (CEFMETAZOLE SODIUM) [Concomitant]
  5. FAMOTIDINE [Concomitant]
  6. PIPERACILLIN SODIUM [Concomitant]
  7. HYOSCINE HBR HYT [Concomitant]

REACTIONS (11)
  - ABDOMINAL PAIN UPPER [None]
  - BLOOD CREATINE PHOSPHOKINASE INCREASED [None]
  - BODY TEMPERATURE INCREASED [None]
  - CARDIOMEGALY [None]
  - DYSPNOEA [None]
  - EOSINOPHILIC MYOCARDITIS [None]
  - GASTRIC ULCER [None]
  - INFECTION [None]
  - PERICARDIAL EFFUSION [None]
  - VENTRICULAR DYSFUNCTION [None]
  - VIRAL MYOCARDITIS [None]
